FAERS Safety Report 4447129-X (Version None)
Quarter: 2004Q3

REPORT INFORMATION
  Report Type: 
  Country: None (occurrence: None)
  Receive Date: 20040813
  Receipt Date: 20040514
  Transmission Date: 20050211
  Serious: No
  Sender: FDA-Public Use
  Company Number: S04-USA-02957-01

PATIENT
  Age: 78 Year
  Sex: Female

DRUGS (11)
  1. NAMENDA [Suspect]
     Indication: DEMENTIA
     Dates: start: 20040331, end: 20040505
  2. REMINYL [Concomitant]
  3. TOPROL-XL [Concomitant]
  4. PLAVIX [Concomitant]
  5. ZOCOR [Concomitant]
  6. VERAPAMIL [Concomitant]
  7. PRILOSEC [Concomitant]
  8. ZOLOFT [Concomitant]
  9. BETOPTIC [Concomitant]
  10. DARVOCET [Concomitant]
  11. MACROBID [Concomitant]

REACTIONS (1)
  - SUICIDAL IDEATION [None]
